FAERS Safety Report 17071984 (Version 1)
Quarter: 2019Q4

REPORT INFORMATION
  Report Type: Report from Study
  Country: NL (occurrence: NL)
  Receive Date: 20191125
  Receipt Date: 20191125
  Transmission Date: 20200122
  Serious: Yes (Hospitalization)
  Sender: FDA-Public Use
  Company Number: NL-SA-2019SA320984

PATIENT
  Age: 69 Year
  Sex: Male

DRUGS (4)
  1. CARBOPLATIN. [Suspect]
     Active Substance: CARBOPLATIN
     Indication: PROSTATE CANCER
     Dosage: 450 MG, Q3W
     Route: 042
     Dates: start: 20191106, end: 20191106
  2. CABAZITAXEL [Suspect]
     Active Substance: CABAZITAXEL
     Dosage: 48 MG, Q3W
     Route: 042
     Dates: start: 20190904, end: 20190904
  3. ESOMEPRAZOL [ESOMEPRAZOLE] [Concomitant]
     Active Substance: ESOMEPRAZOLE
     Dosage: 20 MG
     Route: 065
     Dates: start: 20160105
  4. CABAZITAXEL [Suspect]
     Active Substance: CABAZITAXEL
     Indication: PROSTATE CANCER
     Dosage: 48 MG, Q3W
     Route: 042
     Dates: start: 20191106, end: 20191106

REACTIONS (1)
  - Loss of consciousness [Recovered/Resolved]

NARRATIVE: CASE EVENT DATE: 20191110
